FAERS Safety Report 4555684-4 (Version None)
Quarter: 2005Q1

REPORT INFORMATION
  Report Type: 
  Country: None (occurrence: None)
  Receive Date: 20050119
  Receipt Date: 20050107
  Transmission Date: 20050727
  Serious: Yes (Hospitalization)
  Sender: FDA-Public Use
  Company Number: BR-JNJFOC-20050101944

PATIENT
  Age: 43 Year
  Sex: Female
  Weight: 119 kg

DRUGS (9)
  1. ORTHO EVRA [Suspect]
     Route: 062
  2. ORTHO EVRA [Suspect]
     Indication: CONTRACEPTION
     Route: 062
  3. OMEPRAZOLE [Concomitant]
     Indication: GASTROINTESTINAL DISORDER
  4. CENTRUM [Concomitant]
  5. CENTRUM [Concomitant]
     Indication: VITAMIN SUPPLEMENTATION
  6. DRAMIN [Concomitant]
     Indication: NAUSEA
  7. LISADOR [Concomitant]
  8. LISADOR [Concomitant]
  9. LISADOR [Concomitant]
     Indication: HEADACHE

REACTIONS (7)
  - APPLICATION SITE PRURITUS [None]
  - GALLBLADDER DISORDER [None]
  - HERNIA [None]
  - LIPECTOMY [None]
  - MENORRHAGIA [None]
  - METRORRHAGIA [None]
  - NERVOUS SYSTEM DISORDER [None]
